FAERS Safety Report 17429722 (Version 1)
Quarter: 2020Q1

REPORT INFORMATION
  Report Type: Spontaneous
  Country: US (occurrence: US)
  Receive Date: 20200203
  Receipt Date: 20200203
  Transmission Date: 20200409
  Serious: Yes (Hospitalization)
  Sender: FDA-Public Use
  Company Number: None

PATIENT
  Age: 80 Year
  Sex: Female

DRUGS (1)
  1. XALKORI [Suspect]
     Active Substance: CRIZOTINIB
     Indication: LUNG NEOPLASM MALIGNANT
     Route: 048
     Dates: start: 201909, end: 202001

REACTIONS (4)
  - Respiratory tract irritation [None]
  - Pleural effusion [None]
  - Dyspnoea [None]
  - Movement disorder [None]

NARRATIVE: CASE EVENT DATE: 202001
